FAERS Safety Report 8497695-2 (Version None)
Quarter: 2012Q3

REPORT INFORMATION
  Report Type: 
  Country: None (occurrence: None)
  Receive Date: 20120709
  Receipt Date: 20120604
  Transmission Date: 20120928
  Serious: No
  Sender: FDA-Public Use
  Company Number: US-AMGEN-USASP2012035078

PATIENT
  Age: 65 Year
  Sex: Female
  Weight: 82.086 kg

DRUGS (3)
  1. SIMPONI [Concomitant]
     Dosage: UNK, ONCE A MONTH
     Route: 058
     Dates: start: 20120501
  2. ENBREL [Suspect]
     Indication: RHEUMATOID ARTHRITIS
     Dosage: UNK
     Dates: start: 20120301, end: 20120401
  3. SIMPONI [Concomitant]
     Indication: RHEUMATOID ARTHRITIS
     Dosage: UNK, ONCE A MONTH
     Route: 058
     Dates: start: 20110101, end: 20120201

REACTIONS (7)
  - IMMUNOSUPPRESSION [None]
  - INFECTION [None]
  - BRONCHITIS [None]
  - FEELING ABNORMAL [None]
  - LOCALISED INFECTION [None]
  - RHEUMATOID ARTHRITIS [None]
  - INFLUENZA [None]
